FAERS Safety Report 18701140 (Version 1)
Quarter: 2021Q1

REPORT INFORMATION
  Report Type: Spontaneous
  Country: US (occurrence: US)
  Receive Date: 20210104
  Receipt Date: 20210104
  Transmission Date: 20210419
  Serious: Yes (Hospitalization)
  Sender: FDA-Public Use
  Company Number: None

PATIENT
  Age: 79 Year
  Sex: Female

DRUGS (1)
  1. AUSTEDO [Suspect]
     Active Substance: DEUTETRABENAZINE
     Indication: CHOREA
     Route: 048
     Dates: start: 20201107

REACTIONS (3)
  - Fatigue [None]
  - Somnolence [None]
  - Urinary tract infection [None]

NARRATIVE: CASE EVENT DATE: 20201225
